FAERS Safety Report 15763769 (Version 1)
Quarter: 2018Q4

REPORT INFORMATION
  Report Type: Spontaneous
  Country: FR (occurrence: FR)
  Receive Date: 20181227
  Receipt Date: 20181227
  Transmission Date: 20190205
  Serious: Yes (Other)
  Sender: FDA-Public Use
  Company Number: FR-TEVA-2018-FR-991218

PATIENT
  Age: 62 Year
  Sex: Male

DRUGS (2)
  1. ERBITUX [Suspect]
     Active Substance: CETUXIMAB
     Indication: SQUAMOUS CELL CARCINOMA
     Route: 041
     Dates: start: 20181026, end: 20181026
  2. PACLITAXEL TEVA 6 MG/ML, SOLUTION ? DILUER POUR PERFUSION [Suspect]
     Active Substance: PACLITAXEL
     Indication: SQUAMOUS CELL CARCINOMA
     Dosage: UNSPECIFIED
     Route: 041
     Dates: start: 20181026, end: 20181109

REACTIONS (4)
  - Skin toxicity [Recovering/Resolving]
  - Hyperkeratosis [Recovering/Resolving]
  - Dry skin [Recovering/Resolving]
  - Dermatitis acneiform [Recovering/Resolving]

NARRATIVE: CASE EVENT DATE: 20181102
